FAERS Safety Report 7903561-0 (Version None)
Quarter: 2011Q4

REPORT INFORMATION
  Report Type: 
  Country: None (occurrence: None)
  Receive Date: 20111109
  Receipt Date: 20111109
  Transmission Date: 20120403
  Serious: Yes (Hospitalization)
  Sender: FDA-Public Use
  Company Number: None

PATIENT
  Age: 63 Year
  Sex: Male
  Weight: 90 kg

DRUGS (2)
  1. PRADAXA [Suspect]
     Indication: AORTIC VALVE REPLACEMENT
     Dosage: 150MG
     Route: 048
     Dates: start: 20110505, end: 20111101
  2. PRADAXA [Suspect]
     Indication: OFF LABEL USE
     Dosage: 150MG
     Route: 048
     Dates: start: 20110505, end: 20111101

REACTIONS (1)
  - LOWER GASTROINTESTINAL HAEMORRHAGE [None]
